FAERS Safety Report 24612430 (Version 1)
Quarter: 2024Q4

REPORT INFORMATION
  Report Type: Report from Study
  Country: US (occurrence: US)
  Receive Date: 20241113
  Receipt Date: 20241113
  Transmission Date: 20250114
  Serious: Yes (Other)
  Sender: SUNOVION
  Company Number: US-SMPA-2024SPA004688

PATIENT

DRUGS (3)
  1. ORGOVYX [Suspect]
     Active Substance: RELUGOLIX
     Indication: Prostate cancer
     Dosage: 360 MG
     Route: 048
     Dates: start: 20220411, end: 20220411
  2. ORGOVYX [Suspect]
     Active Substance: RELUGOLIX
     Dosage: 120 MG, QD
     Route: 048
     Dates: start: 20220412
  3. ABIRATERONE [Suspect]
     Active Substance: ABIRATERONE\ABIRATERONE ACETATE
     Indication: Prostate cancer
     Dosage: 100 MG, QD
     Route: 065
     Dates: start: 20230110

REACTIONS (8)
  - Prostate cancer [Unknown]
  - Full blood count abnormal [Unknown]
  - Infection parasitic [Unknown]
  - Anaemia [Unknown]
  - Blood glucose increased [Unknown]
  - Asthenia [Unknown]
  - Depressed mood [Unknown]
  - Libido decreased [Unknown]
